FAERS Safety Report 13426781 (Version 1)
Quarter: 2017Q2

REPORT INFORMATION
  Report Type: Spontaneous
  Country: US (occurrence: US)
  Receive Date: 20170411
  Receipt Date: 20170411
  Transmission Date: 20170830
  Serious: Yes (Death, Hospitalization)
  Sender: FDA-Public Use
  Company Number: None

PATIENT
  Age: 65 Year
  Sex: Female
  Weight: 69.01 kg

DRUGS (7)
  1. CALCIUM [Concomitant]
     Active Substance: CALCIUM
  2. HYDROCHLOROTHIAZIDE. [Concomitant]
     Active Substance: HYDROCHLOROTHIAZIDE
  3. VITAMIN D [Concomitant]
     Active Substance: CHOLECALCIFEROL
  4. CIPROFLOXACIN HCL [Suspect]
     Active Substance: CIPROFLOXACIN HYDROCHLORIDE
     Indication: GASTROINTESTINAL DISORDER
     Dosage: ?          QUANTITY:L4;?
     Route: 048
     Dates: start: 20150720, end: 20150724
  5. VALSARTAN. [Concomitant]
     Active Substance: VALSARTAN
  6. LUTEIN/ZEATHANTHIN [Concomitant]
  7. OMEPRAZOLE. [Concomitant]
     Active Substance: OMEPRAZOLE

REACTIONS (6)
  - Leukocytosis [None]
  - Hypocalcaemia [None]
  - Acidosis [None]
  - Acute kidney injury [None]
  - Hypokalaemia [None]
  - Tendonitis [None]

NARRATIVE: CASE EVENT DATE: 20160725
